FAERS Safety Report 10206426 (Version 1)
Quarter: 2014Q2

REPORT INFORMATION
  Report Type: Spontaneous
  Country: US (occurrence: US)
  Receive Date: 20140530
  Receipt Date: 20140530
  Transmission Date: 20141212
  Serious: No
  Sender: FDA-Public Use
  Company Number: US-JNJFOC-20140512209

PATIENT
  Sex: Male
  Weight: 72.58 kg

DRUGS (2)
  1. DURAGESIC [Suspect]
     Indication: BACK PAIN
     Route: 062
  2. DURAGESIC [Suspect]
     Indication: BACK PAIN
     Route: 062

REACTIONS (4)
  - Drug dose omission [Recovered/Resolved]
  - Treatment noncompliance [Unknown]
  - Insomnia [Not Recovered/Not Resolved]
  - Hyperhidrosis [Recovered/Resolved]
